FAERS Safety Report 19695002 (Version 1)
Quarter: 2021Q3

REPORT INFORMATION
  Report Type: Spontaneous
  Country: PL (occurrence: PL)
  Receive Date: 20210813
  Receipt Date: 20210813
  Transmission Date: 20211014
  Serious: Yes (Other)
  Sender: FDA-Public Use
  Company Number: PL-TOPROL-2021000163

PATIENT
  Age: 68 Year
  Sex: Female

DRUGS (5)
  1. CIPROFLOXACIN. [Suspect]
     Active Substance: CIPROFLOXACIN
     Route: 048
  2. METOPROLOL UNSPECIFIED [Suspect]
     Active Substance: METOPROLOL
     Route: 065
  3. DULOXETINE. [Suspect]
     Active Substance: DULOXETINE
     Route: 065
  4. CELECOXIB. [Suspect]
     Active Substance: CELECOXIB
     Route: 065
  5. ALPRAZOLAM. [Concomitant]
     Active Substance: ALPRAZOLAM
     Route: 065

REACTIONS (6)
  - Product use in unapproved indication [Unknown]
  - Hallucination, visual [Recovered/Resolved]
  - Drug interaction [Recovered/Resolved]
  - Eye pain [Recovered/Resolved]
  - Eye irritation [Recovered/Resolved]
  - Hyperhidrosis [Recovered/Resolved]
